FAERS Safety Report 17259792 (Version 1)
Quarter: 2020Q1

REPORT INFORMATION
  Report Type: Report from Study
  Country: None (occurrence: US)
  Receive Date: 20200110
  Receipt Date: 20200110
  Transmission Date: 20200409
  Serious: Yes (Hospitalization)
  Sender: FDA-Public Use
  Company Number: US-ABBVIE-19K-163-2950705-00

PATIENT
  Sex: Female
  Weight: 83.99 kg

DRUGS (9)
  1. HUMALOG [Concomitant]
     Active Substance: INSULIN LISPRO
     Indication: DIABETES MELLITUS
  2. LANTUS [Concomitant]
     Active Substance: INSULIN GLARGINE
     Indication: DIABETES MELLITUS
  3. ROSUVASTATIN. [Concomitant]
     Active Substance: ROSUVASTATIN
     Indication: PRODUCT USED FOR UNKNOWN INDICATION
  4. RANEPAL [Concomitant]
     Indication: CARDIAC DISORDER
  5. ISOSORBIDE. [Concomitant]
     Active Substance: ISOSORBIDE
     Indication: CARDIAC DISORDER
  6. HUMIRA [Suspect]
     Active Substance: ADALIMUMAB
     Indication: COLITIS ULCERATIVE
     Route: 058
     Dates: end: 20190702
  7. VASCEPA [Concomitant]
     Active Substance: ICOSAPENT ETHYL
     Indication: BLOOD CHOLESTEROL
  8. ASPIRIN 81 [Concomitant]
     Active Substance: ASPIRIN
     Indication: CARDIAC DISORDER
  9. METOPROLOL. [Concomitant]
     Active Substance: METOPROLOL
     Indication: BLOOD PRESSURE MEASUREMENT

REACTIONS (8)
  - Sepsis [Unknown]
  - Mastitis [Recovered/Resolved]
  - Ill-defined disorder [Unknown]
  - Nausea [Unknown]
  - Malaise [Unknown]
  - Vomiting [Unknown]
  - Breast injury [Recovered/Resolved]
  - Arthritis infective [Recovered/Resolved]

NARRATIVE: CASE EVENT DATE: 2019
